FAERS Safety Report 5105736-5 (Version None)
Quarter: 2006Q3

REPORT INFORMATION
  Report Type: 
  Country: None (occurrence: None)
  Receive Date: 20060915
  Receipt Date: 20060908
  Transmission Date: 20061208
  Serious: Yes (Other)
  Sender: FDA-Public Use
  Company Number: 2006UW17699

PATIENT
  Age: 34 Year
  Sex: Male
  Weight: 95 kg

DRUGS (3)
  1. CRESTOR [Suspect]
     Indication: DYSLIPIDAEMIA
     Route: 048
     Dates: start: 20051201, end: 20060101
  2. NPH INSULIN [Concomitant]
     Indication: DIABETES MELLITUS
     Dosage: 40 - 20 UI
     Route: 058
     Dates: start: 20030101
  3. NPH INSULIN [Concomitant]
     Indication: DIABETES MELLITUS
     Dosage: 20 - 5 UI
     Route: 058
     Dates: start: 20030101

REACTIONS (2)
  - PRURITUS [None]
  - VASCULAR SKIN DISORDER [None]
